FAERS Safety Report 14702848 (Version 2)
Quarter: 2018Q2

REPORT INFORMATION
  Report Type: Spontaneous
  Country: JP (occurrence: JP)
  Receive Date: 20180402
  Receipt Date: 20180406
  Transmission Date: 20180711
  Serious: Yes (Hospitalization, Other)
  Sender: FDA-Public Use
  Company Number: JP-UCBSA-2017043409

PATIENT
  Age: 78 Year
  Sex: Female

DRUGS (7)
  1. ESCRE [Concomitant]
     Dosage: 750 MG DAILY
     Route: 054
     Dates: start: 20171023, end: 20171106
  2. DEPAKENE [Concomitant]
     Active Substance: VALPROIC ACID
     Indication: PRODUCT USED FOR UNKNOWN INDICATION
     Dosage: 200 MG
     Route: 048
  3. ALEVIATIN [Concomitant]
     Active Substance: PHENYTOIN SODIUM
     Indication: PRODUCT USED FOR UNKNOWN INDICATION
     Dosage: 100 MG, 2X/DAY (BID)
     Route: 048
     Dates: end: 20170914
  4. ESCRE [Concomitant]
     Indication: PRODUCT USED FOR UNKNOWN INDICATION
     Dosage: 1000 MG DAILY
     Route: 054
     Dates: start: 20170914, end: 20170919
  5. E KEPPRA [Suspect]
     Active Substance: LEVETIRACETAM
     Indication: EPILEPSY
     Dosage: 1000 MG/ DAY
     Route: 048
     Dates: start: 20170920, end: 20171019
  6. ESCRE [Concomitant]
     Dosage: 500 MG DAILY
     Route: 054
     Dates: start: 20171107, end: 20171112
  7. ESCRE [Concomitant]
     Dosage: 750 MG DAILY
     Route: 054
     Dates: start: 20170920, end: 20170925

REACTIONS (3)
  - Thrombocytopenia [Recovered/Resolved]
  - Neutropenia [Recovered/Resolved]
  - Pyrexia [Recovered/Resolved]

NARRATIVE: CASE EVENT DATE: 20171019
